FAERS Safety Report 5159217-3 (Version None)
Quarter: 2006Q4

REPORT INFORMATION
  Report Type: 
  Country: None (occurrence: None)
  Receive Date: 20061128
  Receipt Date: 20061113
  Transmission Date: 20070319
  Serious: Yes (Hospitalization)
  Sender: FDA-Public Use
  Company Number: JP-MERCK-0611USA05231

PATIENT
  Age: 69 Year
  Sex: Female

DRUGS (10)
  1. PEPCID [Suspect]
     Indication: GASTRIC ULCER
     Route: 048
     Dates: start: 20010101
  2. ASTOMIN [Suspect]
     Indication: COUGH
     Route: 048
     Dates: start: 20061021, end: 20061031
  3. ETODOLAC [Suspect]
     Indication: RHEUMATOID ARTHRITIS
     Route: 048
     Dates: start: 20010101
  4. CYANOCOBALAMIN [Concomitant]
     Indication: VITAMIN B12 DEFICIENCY
     Route: 065
     Dates: start: 20010101
  5. FERROMIA [Concomitant]
     Indication: ANAEMIA
     Route: 048
     Dates: start: 20010101
  6. CYTOTEC [Concomitant]
     Indication: GASTRITIS
     Route: 065
     Dates: start: 20061004
  7. BIO THREE [Concomitant]
     Indication: DIARRHOEA
     Route: 065
  8. DEPAS [Concomitant]
     Indication: INSOMNIA
     Route: 048
     Dates: start: 20010101
  9. VOLTAREN [Suspect]
     Indication: RHEUMATOID ARTHRITIS
     Route: 065
     Dates: start: 20010101
  10. ACTONEL [Suspect]
     Route: 065
     Dates: end: 20060901

REACTIONS (9)
  - ALANINE AMINOTRANSFERASE INCREASED [None]
  - ASPARTATE AMINOTRANSFERASE INCREASED [None]
  - BLOOD ALKALINE PHOSPHATASE INCREASED [None]
  - BLOOD LACTATE DEHYDROGENASE INCREASED [None]
  - COUGH [None]
  - GAMMA-GLUTAMYLTRANSFERASE INCREASED [None]
  - HEPATIC FUNCTION ABNORMAL [None]
  - LIVER DISORDER [None]
  - WHITE BLOOD CELL COUNT DECREASED [None]
